FAERS Safety Report 15548848 (Version 4)
Quarter: 2019Q4

REPORT INFORMATION
  Report Type: Report from Study
  Country: US (occurrence: US)
  Receive Date: 20181025
  Receipt Date: 20191211
  Transmission Date: 20200122
  Serious: Yes (Death, Other)
  Sender: FDA-Public Use
  Company Number: US-ROCHE-2203884

PATIENT
  Sex: Male

DRUGS (2)
  1. OCREVUS [Suspect]
     Active Substance: OCRELIZUMAB
     Dosage: DAY 15 INFUSION
     Route: 065
     Dates: start: 20180409, end: 20180409
  2. OCREVUS [Suspect]
     Active Substance: OCRELIZUMAB
     Indication: RELAPSING MULTIPLE SCLEROSIS
     Dosage: DAY 1 INFUSION
     Route: 065
     Dates: start: 20180322, end: 20180322

REACTIONS (3)
  - Urinary tract infection [Unknown]
  - Death [Fatal]
  - Pneumonia [Unknown]
